FAERS Safety Report 20308744 (Version 2)
Quarter: 2022Q1

REPORT INFORMATION
  Report Type: Spontaneous
  Country: US (occurrence: US)
  Receive Date: 20220107
  Receipt Date: 20220216
  Transmission Date: 20220423
  Serious: Yes (Other)
  Sender: FDA-Public Use
  Company Number: US-JNJFOC-20220102000

PATIENT
  Age: 68 Year
  Sex: Male
  Weight: 81.720 kg

DRUGS (2)
  1. XARELTO [Suspect]
     Active Substance: RIVAROXABAN
     Indication: Thrombosis
     Route: 048
  2. XARELTO [Suspect]
     Active Substance: RIVAROXABAN
     Dosage: SERIAL NUMBER-100005067471?GTIN NUMBER-00350458580303?PRESCRIPTION NUMBER-2911408-01411
     Route: 048
     Dates: start: 202011

REACTIONS (3)
  - Deep vein thrombosis [Unknown]
  - Faeces discoloured [Unknown]
  - Product label issue [Unknown]

NARRATIVE: CASE EVENT DATE: 20220103
